APPROVED DRUG PRODUCT: NIASPAN
Active Ingredient: NIACIN
Strength: 1GM **Federal Register determination that product was not discontinued or withdrawn for safety or effectiveness reasons**
Dosage Form/Route: TABLET, EXTENDED RELEASE;ORAL
Application: N020381 | Product #004
Applicant: ABBVIE INC
Approved: Jul 28, 1997 | RLD: Yes | RS: No | Type: DISCN